FAERS Safety Report 9962747 (Version 1)
Quarter: 2014Q1

REPORT INFORMATION
  Report Type: Report from Study
  Country: US (occurrence: US)
  Receive Date: 20140305
  Receipt Date: 20140305
  Transmission Date: 20141002
  Serious: No
  Sender: FDA-Public Use
  Company Number: US-ABBVIE-13P-163-1114153-00

PATIENT
  Age: 56 Year
  Sex: Female

DRUGS (12)
  1. HUMIRA [Suspect]
     Indication: PSORIATIC ARTHROPATHY
     Dates: start: 20130607
  2. EFFEXOR [Concomitant]
     Indication: DEPRESSION
     Dosage: 1 IN AM AND 1 IN PM
     Route: 048
  3. HYDROXYZINE [Concomitant]
     Indication: PRURITUS
  4. LORATADINE [Concomitant]
     Indication: PRODUCT USED FOR UNKNOWN INDICATION
     Route: 048
  5. ULTRAM [Concomitant]
     Indication: SCOLIOSIS
     Dosage: EVERY 8 HOURS AS REQUIRED
     Route: 048
  6. ULTRAM [Concomitant]
     Indication: INTERVERTEBRAL DISC DEGENERATION
  7. AMITRIPTYLINE [Concomitant]
     Indication: PRODUCT USED FOR UNKNOWN INDICATION
     Dosage: 1 OR 2 AT BEDTIME
     Route: 048
  8. LIPITOR [Concomitant]
     Indication: BLOOD CHOLESTEROL INCREASED
     Route: 048
  9. NORVASC [Concomitant]
     Indication: HYPERTENSION
     Route: 048
  10. KLONOPIN [Concomitant]
     Indication: SLEEP DISORDER
     Dosage: 1 OR 2 AT NIGHT
     Route: 048
  11. SEROQUEL [Concomitant]
     Indication: INSOMNIA
     Dosage: AT BEDTIME
     Route: 048
  12. PROAIR [Concomitant]
     Indication: WHEEZING

REACTIONS (4)
  - Kidney contusion [Not Recovered/Not Resolved]
  - Rib fracture [Not Recovered/Not Resolved]
  - Fall [Not Recovered/Not Resolved]
  - Musculoskeletal chest pain [Not Recovered/Not Resolved]
